FAERS Safety Report 6574981-4 (Version None)
Quarter: 2010Q1

REPORT INFORMATION
  Report Type: 
  Country: None (occurrence: None)
  Receive Date: 20100209
  Receipt Date: 20100205
  Transmission Date: 20100710
  Serious: Yes (Death)
  Sender: FDA-Public Use
  Company Number: PHHY2009JP54136

PATIENT
  Sex: Male

DRUGS (3)
  1. COMTAN CMT+TAB [Suspect]
     Indication: PARKINSON'S DISEASE
     Dosage: 400 MG, DAILY
     Route: 048
     Dates: start: 20090429, end: 20090501
  2. CARBIDOPA AND LEVODOPA [Concomitant]
     Indication: PARKINSON'S DISEASE
     Dosage: 250 MG, UNK
     Route: 048
  3. SIFROL [Concomitant]
     Indication: PARKINSON'S DISEASE
     Dosage: 3.0 MG, UNK
     Route: 048

REACTIONS (2)
  - DEATH [None]
  - SUDDEN DEATH [None]
